FAERS Safety Report 4675914-8 (Version None)
Quarter: 2005Q2

REPORT INFORMATION
  Report Type: 
  Country: None (occurrence: None)
  Receive Date: 20050526
  Receipt Date: 20050526
  Transmission Date: 20051028
  Serious: Yes (Death)
  Sender: FDA-Public Use
  Company Number: None

PATIENT
  Age: 7 Month
  Sex: Male
  Weight: 6.22 kg

DRUGS (8)
  1. METHOTREXATE [Suspect]
     Indication: NEOPLASM
     Dosage: 15MG/M2
     Dates: start: 20050301
  2. CYTARABINE [Suspect]
     Dosage: 60MG/M2
     Dates: start: 20050503
  3. LEUCOVORIN [Suspect]
     Dosage: 15MG/M2
  4. VINCRISTINE [Suspect]
     Dosage: 1/2 DOSAGE OF 2MG/M2 (SECONDARY TO PATIENT AGE {1 YEAR).
  5. CISPLATIN [Suspect]
     Dosage: 1/2 DOSAGE OF 90MG/M2 (SECONDARY TO PATIENT AGE {1 YEAR)
  6. DOXORUBICIN [Suspect]
     Dosage: 1/2 DOSAGE OF 30MG/M2/DAY (SECONDARY TO PATIENT AGE {1 YEAR).
  7. CYCLOPHOSPHAMIDE [Suspect]
     Dosage: 1/2 DOSAGE OF 300MG/M2/DAY (SECONDARY TO PATIENT AGE { 1 YEAR)
  8. G-CSF-FILGRASTIM [Suspect]
     Dosage: 5 MCG/KG  DAILY

REACTIONS (6)
  - DISEASE RECURRENCE [None]
  - FONTANELLE BULGING [None]
  - HEAD CIRCUMFERENCE ABNORMAL [None]
  - IRRITABILITY [None]
  - MULTI-ORGAN FAILURE [None]
  - NEOPLASM PROGRESSION [None]
